FAERS Safety Report 9960900 (Version 1)
Quarter: 2014Q1

REPORT INFORMATION
  Report Type: Report from Study
  Country: US (occurrence: US)
  Receive Date: 20140305
  Receipt Date: 20140305
  Transmission Date: 20141002
  Serious: No
  Sender: FDA-Public Use
  Company Number: US-ABBVIE-13P-163-1109759-00

PATIENT
  Age: 46 Year
  Sex: Female

DRUGS (8)
  1. HUMIRA [Suspect]
     Indication: RHEUMATOID ARTHRITIS
     Dates: start: 201302
  2. METHOTREXATE [Concomitant]
     Indication: RHEUMATOID ARTHRITIS
  3. PERCOCET [Concomitant]
     Indication: ARTHRALGIA
  4. XANAX [Concomitant]
     Indication: ANXIETY
     Dosage: AT NIGHT
  5. XANAX [Concomitant]
     Indication: INSOMNIA
  6. GLUCOPHAGE [Concomitant]
     Indication: DIABETES MELLITUS
  7. KARIVA [Concomitant]
     Indication: CONTRACEPTION
  8. TYLENOL #3 [Concomitant]
     Indication: ARTHRALGIA

REACTIONS (13)
  - Injection site pain [Not Recovered/Not Resolved]
  - Food poisoning [Recovered/Resolved]
  - Flatulence [Unknown]
  - Injection site swelling [Not Recovered/Not Resolved]
  - Vomiting [Recovered/Resolved]
  - Diarrhoea [Recovered/Resolved]
  - Bacterial infection [Recovered/Resolved]
  - Headache [Unknown]
  - Nausea [Unknown]
  - Injection site pain [Unknown]
  - Injection site swelling [Unknown]
  - Injection site haemorrhage [Recovered/Resolved]
  - Injection site pain [Unknown]
